FAERS Safety Report 10417679 (Version 2)
Quarter: 2014Q3

REPORT INFORMATION
  Report Type: Report from Study
  Country: US (occurrence: US)
  Receive Date: 20140829
  Receipt Date: 20140910
  Transmission Date: 20150326
  Serious: Yes (Hospitalization, Other)
  Sender: FDA-Public Use
  Company Number: PHHY2014US106789

PATIENT

DRUGS (8)
  1. BASILIXIMAB [Suspect]
     Active Substance: BASILIXIMAB
     Dosage: 20 MG, UNK
     Route: 042
     Dates: start: 20130914
  2. TACROLIMUS. [Suspect]
     Active Substance: TACROLIMUS
     Dosage: 0.5 MG, (RECEIVED COMMERCIAL DRUG IN MORNING)
     Route: 048
     Dates: start: 20140111
  3. MYCOPHENOLATE MOFETIL. [Suspect]
     Active Substance: MYCOPHENOLATE MOFETIL
     Indication: RENAL TRANSPLANT
     Dosage: 500 MG, BID
     Route: 048
     Dates: start: 20140107, end: 20140110
  4. MYCOPHENOLATE MOFETIL. [Suspect]
     Active Substance: MYCOPHENOLATE MOFETIL
     Dosage: 500 MG, (RECEIVED COMMERCIAL DRUG IN MORNING)
     Route: 048
     Dates: start: 20140111
  5. MYCOPHENOLATE MOFETIL. [Suspect]
     Active Substance: MYCOPHENOLATE MOFETIL
     Dosage: 500 MG, (RESUMED HIS DOSING WITH STUDY DRUG FROM EVENING)
     Route: 048
     Dates: start: 20140111
  6. TACROLIMUS. [Suspect]
     Active Substance: TACROLIMUS
     Indication: RENAL TRANSPLANT
     Dosage: 0.5 MG, BID
     Route: 048
     Dates: start: 20130910, end: 20140110
  7. TACROLIMUS. [Suspect]
     Active Substance: TACROLIMUS
     Dosage: 0.5 MG, (RESUMED HIS DOSING WITH STUDY DRUG FROM EVENING)
     Route: 048
     Dates: start: 20140111
  8. BASILIXIMAB [Suspect]
     Active Substance: BASILIXIMAB
     Indication: RENAL TRANSPLANT
     Dosage: 20 MG, UNK
     Route: 042
     Dates: start: 20130910

REACTIONS (17)
  - Sinus bradycardia [Unknown]
  - Acute myocardial infarction [Recovered/Resolved]
  - Pulmonary arterial pressure abnormal [Unknown]
  - Pain [Recovered/Resolved]
  - Pain in extremity [Unknown]
  - Ventricular septal defect acquired [Unknown]
  - Mitral valve calcification [Unknown]
  - Dyspepsia [Unknown]
  - Chest pain [Unknown]
  - Left ventricular hypertrophy [Unknown]
  - Blood glucose increased [Unknown]
  - Vomiting [Unknown]
  - Aortic valve calcification [Unknown]
  - Ventricular dyskinesia [Unknown]
  - Spinal pain [Unknown]
  - Aortic stenosis [Unknown]
  - Influenza [Unknown]

NARRATIVE: CASE EVENT DATE: 201401
